FAERS Safety Report 6679256-0 (Version None)
Quarter: 2010Q2

REPORT INFORMATION
  Report Type: 
  Country: None (occurrence: None)
  Receive Date: 20100409
  Receipt Date: 20100323
  Transmission Date: 20101027
  Serious: Yes (Other)
  Sender: FDA-Public Use
  Company Number: CV20100154

PATIENT

DRUGS (1)
  1. PROPOFOL [Suspect]
     Indication: INDUCTION OF ANAESTHESIA
     Dosage: INTRAVENOUS (NOT OTHERWISE SPECIFIED)
     Route: 042

REACTIONS (9)
  - KLEBSIELLA INFECTION [None]
  - LEUKOPENIA [None]
  - LIVER DISORDER [None]
  - POST PROCEDURAL SEPSIS [None]
  - PRODUCT CONTAMINATION [None]
  - RENAL IMPAIRMENT [None]
  - SERRATIA INFECTION [None]
  - THROMBOCYTOPENIA [None]
  - WRONG TECHNIQUE IN DRUG USAGE PROCESS [None]
